FAERS Safety Report 6236966-7 (Version None)
Quarter: 2009Q2

REPORT INFORMATION
  Report Type: 
  Country: None (occurrence: None)
  Receive Date: 20090619
  Receipt Date: 20090408
  Transmission Date: 20091009
  Serious: No
  Sender: FDA-Public Use
  Company Number: US-ASTRAZENECA-2009UW05654

PATIENT
  Age: 79 Year
  Sex: Female
  Weight: 61.2 kg

DRUGS (4)
  1. SYMBICORT [Suspect]
     Indication: ASTHMA
     Dosage: 2 PUFFS
     Route: 055
     Dates: start: 20090206
  2. ALBUTEROL [Concomitant]
  3. ALBUTEROL [Concomitant]
  4. SPIRIVA [Concomitant]

REACTIONS (1)
  - DYSPNOEA [None]
